FAERS Safety Report 6556466-4 (Version None)
Quarter: 2010Q1

REPORT INFORMATION
  Report Type: 
  Country: None (occurrence: None)
  Receive Date: 20100128
  Receipt Date: 20100126
  Transmission Date: 20100710
  Serious: Yes (Hospitalization)
  Sender: FDA-Public Use
  Company Number: US-MERCK-1001USA01844

PATIENT
  Sex: Male

DRUGS (5)
  1. VYTORIN [Suspect]
     Route: 048
     Dates: start: 20060301, end: 20100101
  2. GLYBURIDE [Concomitant]
     Route: 065
  3. AVANDIA [Concomitant]
     Route: 065
  4. MEDROL [Concomitant]
     Route: 065
  5. PLAVIX [Concomitant]
     Route: 065

REACTIONS (1)
  - MYOCARDIAL INFARCTION [None]
